FAERS Safety Report 6397569-7 (Version None)
Quarter: 2009Q4

REPORT INFORMATION
  Report Type: 
  Country: None (occurrence: None)
  Receive Date: 20091012
  Receipt Date: 20090910
  Transmission Date: 20100525
  Serious: No
  Sender: FDA-Public Use
  Company Number: US-BAYER-200932984NA

PATIENT
  Age: 26 Year
  Sex: Female
  Weight: 75 kg

DRUGS (2)
  1. ULTRAVIST 300 [Suspect]
     Indication: COMPUTERISED TOMOGRAM ABDOMEN
     Dosage: TOTAL DAILY DOSE: 112 ML  UNIT DOSE: 200 ML
     Route: 042
     Dates: start: 20090909, end: 20090909
  2. GASTROGRAFIN [Concomitant]
     Route: 048
     Dates: start: 20090909, end: 20090909

REACTIONS (1)
  - URTICARIA [None]
